FAERS Safety Report 18114047 (Version 3)
Quarter: 2021Q2

REPORT INFORMATION
  Report Type: Spontaneous
  Country: None (occurrence: US)
  Receive Date: 20200805
  Receipt Date: 20210624
  Transmission Date: 20210717
  Serious: Yes (Other)
  Sender: FDA-Public Use
  Company Number: US-GLAXOSMITHKLINE-US2020150753

PATIENT
  Sex: Male

DRUGS (6)
  1. ZANTAC [Suspect]
     Active Substance: RANITIDINE HYDROCHLORIDE
  2. RANITIDINE. [Suspect]
     Active Substance: RANITIDINE
     Indication: BLADDER CANCER
     Dosage: UNK, QD
     Route: 065
     Dates: start: 199801, end: 201301
  3. ZANTAC [Suspect]
     Active Substance: RANITIDINE HYDROCHLORIDE
     Indication: BLADDER CANCER
     Dosage: UNK UNK, QD
     Route: 065
     Dates: start: 199801, end: 201301
  4. RANITIDINE. [Suspect]
     Active Substance: RANITIDINE
     Indication: BLADDER CANCER
     Dosage: UNK, QD
     Route: 065
     Dates: start: 199801, end: 201301
  5. ZANTAC [Suspect]
     Active Substance: RANITIDINE HYDROCHLORIDE
     Indication: BLADDER CANCER
     Dosage: UNK UNK, QD
     Route: 065
     Dates: start: 199801, end: 201301
  6. RANITIDINE. [Suspect]
     Active Substance: RANITIDINE

REACTIONS (1)
  - Bladder cancer [Unknown]
